FAERS Safety Report 8802933 (Version 6)
Quarter: 2013Q2

REPORT INFORMATION
  Report Type: Report from Study
  Country: JP (occurrence: JP)
  Receive Date: 20120924
  Receipt Date: 20130422
  Transmission Date: 20140414
  Serious: Yes (Death, Life-Threatening, Hospitalization)
  Sender: FDA-Public Use
  Company Number: JP-PFIZER INC-2012231629

PATIENT
  Age: 71 Year
  Sex: Male
  Weight: 61.7 kg

DRUGS (9)
  1. XALKORI [Suspect]
     Indication: NON-SMALL CELL LUNG CANCER
     Dosage: 250 MG, 2X/DAY
     Route: 048
     Dates: start: 20120914, end: 20120917
  2. BLOPRESS [Concomitant]
     Dosage: 4 MG, 1X/DAY
     Route: 048
  3. CRESTOR [Concomitant]
     Dosage: 2.5 MG, 1X/DAY
     Route: 048
  4. URINORM [Concomitant]
     Dosage: 50 MG, 1X/DAY
     Route: 048
  5. TAKEPRON [Concomitant]
     Dosage: 15 MG, 1X/DAY
     Route: 048
  6. TAMSULOSIN [Concomitant]
     Dosage: 0.2 MG, 1X/DAY
     Route: 048
  7. SHAKUYAKUKANZOUTOU [Concomitant]
     Dosage: 2.5 G, 3X/DAY
     Route: 048
  8. ROHYPNOL [Concomitant]
     Dosage: 2 MG, 1X/DAY
     Route: 048
  9. FALKEN TAPE [Concomitant]
     Dosage: 20 MG, 1X/DAY

REACTIONS (1)
  - Interstitial lung disease [Fatal]
